FAERS Safety Report 9293936 (Version 1)
Quarter: 2013Q1

REPORT INFORMATION
  Report Type: Spontaneous
  Country: US (occurrence: None)
  Receive Date: 20121221
  Receipt Date: 20121221
  Transmission Date: 20140127
  Serious: Yes (Other)
  Sender: FDA-Public Use
  Company Number: PHEH2011US008654

PATIENT
  Age: 9 Year
  Sex: Female

DRUGS (3)
  1. FOCALIN XR [Suspect]
     Route: 048
  2. DEXMETHYLPHENIDATE HYDROCHLORIDE [Suspect]
  3. MELATONIN (MELATONIN) [Concomitant]

REACTIONS (4)
  - Hallucination, visual [None]
  - Abnormal behaviour [None]
  - Pigmentation disorder [None]
  - Drug prescribing error [None]
